FAERS Safety Report 19274933 (Version 9)
Quarter: 2025Q1

REPORT INFORMATION
  Report Type: Spontaneous
  Country: US (occurrence: US)
  Receive Date: 20210519
  Receipt Date: 20250320
  Transmission Date: 20250409
  Serious: Yes (Other)
  Sender: PFIZER
  Company Number: US-PFIZER INC-2021515065

PATIENT
  Age: 83 Year
  Sex: Female

DRUGS (4)
  1. XELJANZ [Suspect]
     Active Substance: TOFACITINIB CITRATE
     Route: 048
  2. XELJANZ [Suspect]
     Active Substance: TOFACITINIB CITRATE
     Dosage: 5 MG, 1X/DAY (1 PILL A DAY)
     Route: 048
  3. XELJANZ [Suspect]
     Active Substance: TOFACITINIB CITRATE
  4. XELJANZ [Suspect]
     Active Substance: TOFACITINIB CITRATE
     Dosage: TAKE 1 TABLET BY MOUTH TWICE A DAY
     Route: 048

REACTIONS (12)
  - Fall [Unknown]
  - Lower limb fracture [Unknown]
  - Shoulder fracture [Unknown]
  - Cerebral haemorrhage [Unknown]
  - Asthenia [Unknown]
  - Muscle strain [Unknown]
  - Malaise [Unknown]
  - Back injury [Unknown]
  - Pruritus allergic [Unknown]
  - Gait inability [Unknown]
  - Diarrhoea [Unknown]
  - Intentional product misuse [Unknown]

NARRATIVE: CASE EVENT DATE: 20220101
